FAERS Safety Report 17439815 (Version 1)
Quarter: 2020Q1

REPORT INFORMATION
  Report Type: Spontaneous
  Country: US (occurrence: US)
  Receive Date: 20200220
  Receipt Date: 20200220
  Transmission Date: 20200409
  Serious: Yes (Other)
  Sender: FDA-Public Use
  Company Number: US-ASTRAZENECA-2020SE23174

PATIENT
  Age: 66 Year
  Sex: Female
  Weight: 83.9 kg

DRUGS (10)
  1. PENICILLIN [Concomitant]
     Active Substance: PENICILLIN
     Indication: BRONCHITIS
     Route: 048
  2. SULPHASALAZINE DR/EC [Concomitant]
     Indication: ARTHRITIS
     Route: 048
     Dates: start: 2015
  3. SYMBICORT [Suspect]
     Active Substance: BUDESONIDE\FORMOTEROL FUMARATE DIHYDRATE
     Indication: BRONCHITIS CHRONIC
     Dosage: 160/4.5 MCG, 2 PUFFS, TWICE DAILY
     Route: 055
     Dates: start: 201312, end: 2016
  4. SYMBICORT [Suspect]
     Active Substance: BUDESONIDE\FORMOTEROL FUMARATE DIHYDRATE
     Indication: BRONCHITIS CHRONIC
     Dosage: 160/4.5 MCG, 2 PUFFS, TWICE DAILY
     Route: 055
     Dates: start: 201912
  5. STEROIDS [Concomitant]
     Active Substance: UNSPECIFIED INGREDIENT
     Route: 048
  6. SYNTHROID [Concomitant]
     Active Substance: LEVOTHYROXINE SODIUM
     Indication: THYROID OPERATION
     Route: 048
     Dates: start: 2012
  7. TIMALOL [Concomitant]
     Dosage: DAILY, 1 DROP IN EACH EYE
     Route: 047
     Dates: start: 2010
  8. ZYRTEC [Concomitant]
     Active Substance: CETIRIZINE HYDROCHLORIDE
     Indication: HYPERSENSITIVITY
     Dosage: DAILY
     Route: 048
  9. LOSARTIN HTCZ [Concomitant]
     Indication: BLOOD PRESSURE MEASUREMENT
     Route: 048
     Dates: start: 2012
  10. XALATAN [Concomitant]
     Active Substance: LATANOPROST
     Indication: GLAUCOMA
     Dosage: AT NIGHT, 1 DROP EACH EYE
     Route: 047
     Dates: start: 2006

REACTIONS (7)
  - Chest pain [Unknown]
  - Cough [Unknown]
  - Product use issue [Unknown]
  - Bronchitis [Unknown]
  - Intentional product misuse [Unknown]
  - Skin cancer [Unknown]
  - Rheumatoid arthritis [Unknown]

NARRATIVE: CASE EVENT DATE: 2015
